FAERS Safety Report 4919668-6 (Version None)
Quarter: 2006Q1

REPORT INFORMATION
  Report Type: 
  Country: None (occurrence: None)
  Receive Date: 20060216
  Receipt Date: 20060123
  Transmission Date: 20060701
  Serious: Yes (Other)
  Sender: FDA-Public Use
  Company Number: ENT 2006-0022

PATIENT
  Age: 79 Year
  Sex: Male

DRUGS (2)
  1. COMTAN [Suspect]
     Indication: PARKINSON'S DISEASE
     Dosage: 600MG/DAY, ORAL
     Route: 048
     Dates: start: 20051128, end: 20051219
  2. MADOPAR [Concomitant]

REACTIONS (1)
  - HALLUCINATION, VISUAL [None]
